FAERS Safety Report 8924364 (Version 1)
Quarter: 2012Q4

REPORT INFORMATION
  Report Type: 
  Country: PT (occurrence: PT)
  Receive Date: 20121126
  Receipt Date: 20121126
  Transmission Date: 20130627
  Serious: Yes (Other)
  Sender: FDA-Public Use
  Company Number: PT-VIIV HEALTHCARE LIMITED-B0847239A

PATIENT
  Sex: Female

DRUGS (2)
  1. KIVEXA [Suspect]
     Indication: HIV INFECTION
     Route: 048
  2. ATAZANAVIR [Suspect]
     Indication: HIV INFECTION
     Route: 048

REACTIONS (1)
  - Hepatocellular injury [Unknown]
